FAERS Safety Report 21152399 (Version 1)
Quarter: 2022Q3

REPORT INFORMATION
  Report Type: Spontaneous
  Country: US (occurrence: US)
  Receive Date: 20220730
  Receipt Date: 20220730
  Transmission Date: 20221027
  Serious: No
  Sender: FDA-Public Use
  Company Number: US-SA-SAC20220725000282

PATIENT
  Age: 71 Year
  Sex: Female

DRUGS (21)
  1. DUPIXENT [Suspect]
     Active Substance: DUPILUMAB
     Indication: Asthma
     Dosage: 200 MG, QOW
     Route: 058
     Dates: start: 20220609
  2. VITAMINS NOS [Concomitant]
     Active Substance: VITAMINS
  3. EPINEPHRINE [Concomitant]
     Active Substance: EPINEPHRINE
  4. PREDNISONE [Concomitant]
     Active Substance: PREDNISONE
  5. ALLEGRA ALLERGY [Concomitant]
     Active Substance: FEXOFENADINE HYDROCHLORIDE
  6. CLARITIN [Concomitant]
     Active Substance: LORATADINE
  7. PRILOSEC [Concomitant]
     Active Substance: OMEPRAZOLE MAGNESIUM
  8. AMBIEN [Concomitant]
     Active Substance: ZOLPIDEM TARTRATE
  9. ARAVA [Concomitant]
     Active Substance: LEFLUNOMIDE
  10. PLAQUENIL [Concomitant]
     Active Substance: HYDROXYCHLOROQUINE SULFATE
  11. GABAPENTIN [Concomitant]
     Active Substance: GABAPENTIN
  12. SERTRALINE HYDROCHLORIDE [Concomitant]
     Active Substance: SERTRALINE HYDROCHLORIDE
  13. SINGULAIR [Concomitant]
     Active Substance: MONTELUKAST SODIUM
  14. TRAMADOL HCL [Concomitant]
     Active Substance: TRAMADOL HYDROCHLORIDE
  15. LUNESTA [Concomitant]
     Active Substance: ESZOPICLONE
  16. CALCIUM [Concomitant]
     Active Substance: CALCIUM
  17. BREO ELLIPTA [Concomitant]
     Active Substance: FLUTICASONE FUROATE\VILANTEROL TRIFENATATE
  18. PROAIR HFA [Concomitant]
     Active Substance: ALBUTEROL SULFATE
  19. ALBUTEROL SULFATE [Concomitant]
     Active Substance: ALBUTEROL SULFATE
  20. ORENCIA [Concomitant]
     Active Substance: ABATACEPT
  21. PREDNISONE [Concomitant]
     Active Substance: PREDNISONE

REACTIONS (1)
  - Arthralgia [Unknown]

NARRATIVE: CASE EVENT DATE: 20220101
